FAERS Safety Report 10310249 (Version 3)
Quarter: 2016Q2

REPORT INFORMATION
  Report Type: Spontaneous
  Country: US (occurrence: US)
  Receive Date: 20140717
  Receipt Date: 20160516
  Transmission Date: 20160815
  Serious: No
  Sender: FDA-Public Use
  Company Number: US-PFIZER INC-2014112905

PATIENT
  Age: 65 Year
  Sex: Female
  Weight: 99.77 kg

DRUGS (11)
  1. ULTRAM [Concomitant]
     Active Substance: TRAMADOL HYDROCHLORIDE
     Dosage: 50 MG, 1X/DAY
  2. NEURONTIN [Suspect]
     Active Substance: GABAPENTIN
     Dosage: 800 MG, 4X/DAY
  3. VITAMIN D [Concomitant]
     Active Substance: CHOLECALCIFEROL
     Dosage: 2000 IU, DAILY
     Route: 048
  4. DICLOFENAC [Concomitant]
     Active Substance: DICLOFENAC
     Dosage: UNK
  5. ASPIRIN. [Concomitant]
     Active Substance: ASPIRIN
     Dosage: 81 MG, WEEKLY (3 (THREE) TIMES A WEEK)
     Route: 048
  6. LIORESAL [Concomitant]
     Active Substance: BACLOFEN
     Dosage: 10 MG, UNK (ONE TABLET ON THE FIRST AND THIRD DOSES, ONE HALF TABLET ON THE SECOND AND FORTH DOSES)
  7. DULCOLAX NOS [Concomitant]
     Active Substance: BISACODYL OR DOCUSATE SODIUM
     Dosage: 10 MG, AS NEEDED
  8. TUSSIONEX PENNKINETIC [Concomitant]
     Active Substance: CHLORPHENIRAMINE\HYDROCODONE
     Dosage: UNK (10-8MG/5ML)
  9. NEURONTIN [Suspect]
     Active Substance: GABAPENTIN
     Indication: NEURALGIA
     Dosage: 600 MG, 4X/DAY
     Dates: start: 200011
  10. GLUCOTROL [Concomitant]
     Active Substance: GLIPIZIDE
     Dosage: 5 MG, DAILY (BEFORE BREAKFAST)
     Route: 048
  11. GLUCOPHAGE [Concomitant]
     Active Substance: METFORMIN HYDROCHLORIDE
     Dosage: 500 MG, 4X/DAY (? TABLET)
     Route: 048

REACTIONS (3)
  - Hypoaesthesia [Unknown]
  - Product use issue [Unknown]
  - Neck injury [Unknown]
